FAERS Safety Report 14941290 (Version 4)
Quarter: 2018Q2

REPORT INFORMATION
  Report Type: Spontaneous
  Country: GB (occurrence: GB)
  Receive Date: 20180526
  Receipt Date: 20180629
  Transmission Date: 20180711
  Serious: Yes (Death)
  Sender: FDA-Public Use
  Company Number: GB-ABBVIE-18K-167-2368737-00

PATIENT
  Age: 55 Year
  Sex: Female
  Weight: 47 kg

DRUGS (1)
  1. HUMIRA [Suspect]
     Active Substance: ADALIMUMAB
     Indication: PRODUCT USED FOR UNKNOWN INDICATION
     Route: 058

REACTIONS (7)
  - Malaise [Fatal]
  - Abdominal distension [Fatal]
  - Respiratory failure [Fatal]
  - Crohn^s disease [Fatal]
  - Pneumonia [Fatal]
  - Osteoporosis [Fatal]
  - Hypophagia [Fatal]

NARRATIVE: CASE EVENT DATE: 20180424
